FAERS Safety Report 12304034 (Version 1)
Quarter: 2016Q2

REPORT INFORMATION
  Report Type: Spontaneous
  Country: US (occurrence: None)
  Receive Date: 20160425
  Receipt Date: 20160425
  Transmission Date: 20160815
  Serious: Yes (Life-Threatening, Disabling, Other)
  Sender: FDA-Public Use
  Company Number: None

PATIENT
  Age: 46 Year
  Sex: Female
  Weight: 56.7 kg

DRUGS (6)
  1. FISH OIL [Concomitant]
     Active Substance: FISH OIL
  2. LYRICA [Suspect]
     Active Substance: PREGABALIN
     Indication: NEUROPATHY PERIPHERAL
     Dosage: 2 CAPSULE(S) TWICE A DAY TAKEN BY MOUTH
     Route: 048
     Dates: start: 20151115, end: 20160421
  3. VITAMIN D [Concomitant]
     Active Substance: CHOLECALCIFEROL
  4. LOLO ESTRIN [Concomitant]
  5. ZOLPIDEM [Concomitant]
     Active Substance: ZOLPIDEM\ZOLPIDEM TARTRATE
  6. MULTIVITAMINS [Concomitant]
     Active Substance: VITAMINS

REACTIONS (10)
  - Depersonalisation/derealisation disorder [None]
  - Impaired work ability [None]
  - Drug withdrawal syndrome [None]
  - Suicidal ideation [None]
  - Alcohol use [None]
  - Depression [None]
  - Anxiety [None]
  - Aphasia [None]
  - Memory impairment [None]
  - Rebound effect [None]

NARRATIVE: CASE EVENT DATE: 20160402
